FAERS Safety Report 4527870-0 (Version None)
Quarter: 2004Q4

REPORT INFORMATION
  Report Type: 
  Country: None (occurrence: None)
  Receive Date: 20041123
  Receipt Date: 20040907
  Transmission Date: 20050328
  Serious: Yes (Other)
  Sender: FDA-Public Use
  Company Number: HQWYE882708SEP04

PATIENT
  Age: 21 Year
  Sex: Female

DRUGS (4)
  1. ZOSYN [Suspect]
     Dosage: 4.5 G 1X PER 6 HR, INTRAVENOUS
     Route: 042
     Dates: start: 20040823
  2. CLINDAMYCIN (CLINDAMYCIN) [Concomitant]
  3. VANCOMYCIN [Concomitant]
  4. TOBRAMYCIN [Concomitant]

REACTIONS (2)
  - ANAEMIA [None]
  - NEUTROPENIA [None]
